FAERS Safety Report 8942866 (Version 2)
Quarter: 2013Q1

REPORT INFORMATION
  Report Type: Spontaneous
  Country: DK (occurrence: IT)
  Receive Date: 20121204
  Receipt Date: 20130108
  Transmission Date: 20140127
  Serious: Yes (Hospitalization, Other)
  Sender: FDA-Public Use
  Company Number: IT-FRI-1000040748

PATIENT
  Age: 51 Year
  Sex: Female

DRUGS (8)
  1. ESCITALOPRAM ORAL SOLUTION [Suspect]
     Indication: DEPRESSION
     Dosage: 8 GTT
     Route: 048
     Dates: start: 201205, end: 20121108
  2. ESCITALOPRAM ORAL SOLUTION [Suspect]
     Route: 048
     Dates: start: 20121108, end: 20121108
  3. TOLEP [Concomitant]
  4. LYRICA [Concomitant]
  5. TAVOR [Concomitant]
  6. QUESTRAN [Concomitant]
  7. EUTIROX [Concomitant]
  8. METFORMINE [Concomitant]

REACTIONS (4)
  - Incorrect dose administered [Recovering/Resolving]
  - Depressed level of consciousness [Recovering/Resolving]
  - Sopor [Recovering/Resolving]
  - Overdose [Recovered/Resolved]
